FAERS Safety Report 5117321-X (Version None)
Quarter: 2006Q3

REPORT INFORMATION
  Report Type: 
  Country: None (occurrence: None)
  Receive Date: 20060926
  Receipt Date: 20060911
  Transmission Date: 20061208
  Serious: Yes (Other)
  Sender: FDA-Public Use
  Company Number: 2006S1007637

PATIENT
  Age: 75 Year
  Sex: Female
  Weight: 48.0813 kg

DRUGS (8)
  1. LISINOPRIL AND HYDROCHLOROTHIAZIDE            TABLETS (20 MG) [Suspect]
     Indication: FLUID RETENTION
     Dosage: 20 MG;QAM;PO
     Route: 048
     Dates: start: 20030101, end: 20060813
  2. LISINOPRIL AND HYDROCHLOROTHIAZIDE            TABLETS (20 MG) [Suspect]
     Indication: HYPERTENSION
     Dosage: 20 MG;QAM;PO
     Route: 048
     Dates: start: 20030101, end: 20060813
  3. TEMAZEPAM [Concomitant]
  4. MULTIVIT [Concomitant]
  5. VITAMIN E [Concomitant]
  6. ASCORBIC ACID [Concomitant]
  7. CHONDROITIN SULFATE W/GLUCOSAMINE [Concomitant]
  8. CALCIUM GLUCONATE [Concomitant]

REACTIONS (7)
  - BLOOD PRESSURE SYSTOLIC INCREASED [None]
  - DEHYDRATION [None]
  - DRUG EFFECT DECREASED [None]
  - FORMICATION [None]
  - HEADACHE [None]
  - SWELLING FACE [None]
  - VISION BLURRED [None]
